FAERS Safety Report 6257694-8 (Version None)
Quarter: 2009Q3

REPORT INFORMATION
  Report Type: 
  Country: None (occurrence: None)
  Receive Date: 20090706
  Receipt Date: 20090629
  Transmission Date: 20100115
  Serious: Yes (Other)
  Sender: FDA-Public Use
  Company Number: DK-AVENTIS-200915057GDDC

PATIENT
  Age: 22 Year
  Sex: Female

DRUGS (4)
  1. LANTUS [Suspect]
     Route: 058
     Dates: start: 20061012, end: 20080602
  2. PENTREXYL                          /00000501/ [Concomitant]
     Dosage: DOSE: 1 G IV/PO
     Dates: start: 20080907, end: 20080908
  3. METRONIDAZOLE [Concomitant]
     Dosage: DOSE: 1/2
     Route: 054
     Dates: start: 20080907, end: 20080908
  4. SELEXID                            /00445302/ [Concomitant]
     Indication: CYSTITIS
     Route: 048
     Dates: start: 20080908, end: 20080911

REACTIONS (3)
  - CONDITION AGGRAVATED [None]
  - DIABETIC RETINOPATHY [None]
  - DRUG EXPOSURE DURING PREGNANCY [None]
